FAERS Safety Report 7846915-3 (Version None)
Quarter: 2011Q4

REPORT INFORMATION
  Report Type: 
  Country: None (occurrence: None)
  Receive Date: 20111025
  Receipt Date: 20111014
  Transmission Date: 20120403
  Serious: Yes (Other)
  Sender: FDA-Public Use
  Company Number: US-CELGENEUS-163-21880-11080553

PATIENT
  Sex: Female

DRUGS (8)
  1. METOPROLOL TARTRATE [Concomitant]
     Dosage: 25 MILLIGRAM
     Route: 065
  2. BIDIL [Concomitant]
     Dosage: 20/37.5
     Route: 065
  3. FENTANYL-100 [Concomitant]
     Indication: PAIN MANAGEMENT
     Dosage: 12 MILLIGRAM
     Route: 065
     Dates: start: 20110411
  4. ASPIRIN [Concomitant]
     Indication: THROMBOSIS PROPHYLAXIS
     Dosage: 81 MILLIGRAM
     Route: 065
  5. AVAPRO [Concomitant]
     Dosage: 150 MILLIGRAM
     Route: 065
  6. OMEPRAZOLE [Concomitant]
     Indication: GASTRIC ULCER
     Dosage: 20 MILLIGRAM
     Route: 048
  7. METFORMIN HCL [Concomitant]
     Dosage: 500 MILLIGRAM
     Route: 048
  8. REVLIMID [Suspect]
     Indication: MYELODYSPLASTIC SYNDROME
     Dosage: 5 MILLIGRAM
     Route: 048
     Dates: start: 20101020, end: 20110810

REACTIONS (5)
  - THROMBOPHLEBITIS SUPERFICIAL [None]
  - PANCYTOPENIA [None]
  - SPINAL COLUMN STENOSIS [None]
  - THROMBOCYTOPENIA [None]
  - CANDIDIASIS [None]
